FAERS Safety Report 25669345 (Version 2)
Quarter: 2025Q3

REPORT INFORMATION
  Report Type: Report from Study
  Country: US (occurrence: US)
  Receive Date: 20250812
  Receipt Date: 20250821
  Transmission Date: 20251021
  Serious: No
  Sender: SUNOVION
  Company Number: US-SMPA-2025SPA010189

PATIENT
  Age: 77 Year
  Sex: Male

DRUGS (9)
  1. ORGOVYX [Suspect]
     Active Substance: RELUGOLIX
     Indication: Prostate cancer
     Route: 048
  2. ORGOVYX [Suspect]
     Active Substance: RELUGOLIX
     Route: 048
  3. ERLEADA [Suspect]
     Active Substance: APALUTAMIDE
     Indication: Product used for unknown indication
     Dosage: 240 MG, QD
  4. ERLEADA [Suspect]
     Active Substance: APALUTAMIDE
     Dosage: 120 MG, QD
  5. ASPIRIN [Concomitant]
     Active Substance: ASPIRIN
  6. PRALUENT [Concomitant]
     Active Substance: ALIROCUMAB
  7. VITAMINS [Concomitant]
     Active Substance: VITAMINS
  8. DIETARY SUPPLEMENT [Concomitant]
     Active Substance: DIETARY SUPPLEMENT
  9. HERBALS\TURMERIC [Concomitant]
     Active Substance: HERBALS\TURMERIC

REACTIONS (4)
  - Dysstasia [Unknown]
  - Poor quality sleep [Unknown]
  - Asthenia [Unknown]
  - Dizziness [Unknown]
